FAERS Safety Report 4760176-3 (Version None)
Quarter: 2005Q3

REPORT INFORMATION
  Report Type: 
  Country: None (occurrence: None)
  Receive Date: 20050831
  Receipt Date: 20050831
  Transmission Date: 20060218
  Serious: Yes (Disabling)
  Sender: FDA-Public Use
  Company Number: None

PATIENT
  Age: 73 Year
  Sex: Male
  Weight: 68.0396 kg

DRUGS (2)
  1. TENORMIN [Suspect]
     Indication: HYPERTENSION
     Dosage: ORAL DAILY TO 5/12/05
     Route: 048
     Dates: end: 20050512
  2. BENICAR [Suspect]
     Indication: HYPERTENSION
     Dosage: ORAL DAILY FROM 5/13/05
     Dates: start: 20050513

REACTIONS (8)
  - ANXIETY [None]
  - BLOOD PRESSURE DIASTOLIC INCREASED [None]
  - BLOOD PRESSURE INCREASED [None]
  - CARDIOVASCULAR DISORDER [None]
  - DRUG DOSE OMISSION [None]
  - HEART RATE DECREASED [None]
  - MUSCLE SPASMS [None]
  - VERTIGO POSITIONAL [None]
